FAERS Safety Report 12278590 (Version 1)
Quarter: 2016Q2

REPORT INFORMATION
  Report Type: Spontaneous
  Country: VE (occurrence: VE)
  Receive Date: 20160418
  Receipt Date: 20160418
  Transmission Date: 20160815
  Serious: Yes (Other)
  Sender: FDA-Public Use
  Company Number: PHHY2016VE051554

PATIENT
  Age: 4 Year
  Sex: Female

DRUGS (9)
  1. PROGRAF [Concomitant]
     Active Substance: TACROLIMUS\TACROLIMUS ANHYDROUS
     Indication: RENAL TRANSPLANT
     Dosage: 2 MG, QD
     Route: 065
     Dates: start: 20130304
  2. ENALAPRIL [Concomitant]
     Active Substance: ENALAPRIL
     Indication: HYPERTENSION
     Dosage: 10 MG, QD
     Route: 065
     Dates: start: 2012
  3. CERTICAN [Suspect]
     Active Substance: EVEROLIMUS
     Indication: RENAL TRANSPLANT
     Dosage: 0.5 MG, QD
     Route: 048
     Dates: start: 20130304
  4. PREDNISONE. [Concomitant]
     Active Substance: PREDNISONE
     Indication: RENAL TRANSPLANT
     Dosage: 5 MG, QD
     Route: 065
     Dates: start: 20130303
  5. CERTICAN [Suspect]
     Active Substance: EVEROLIMUS
     Dosage: 0.5 MG, QOD
     Route: 048
     Dates: start: 2013
  6. AMLODIPINE [Concomitant]
     Active Substance: AMLODIPINE BESYLATE
     Indication: HYPERTENSION
     Dosage: 5 MG, QD
     Route: 065
     Dates: start: 2012
  7. PLEXAMIN [Concomitant]
     Indication: APPETITE DISORDER
     Dosage: 5 MG, QD
     Route: 065
     Dates: start: 2013
  8. MYFORTIC [Suspect]
     Active Substance: MYCOPHENOLATE SODIUM
     Indication: RENAL TRANSPLANT
     Dosage: 360 MG, QD
     Route: 048
     Dates: start: 20130304
  9. MYFORTIC [Suspect]
     Active Substance: MYCOPHENOLATE SODIUM
     Dosage: 360 MG, QOD
     Route: 048
     Dates: start: 2013

REACTIONS (3)
  - Malnutrition [Unknown]
  - Inappropriate schedule of drug administration [Unknown]
  - Product use issue [Unknown]

NARRATIVE: CASE EVENT DATE: 2013
